FAERS Safety Report 19273495 (Version 1)
Quarter: 2021Q2

REPORT INFORMATION
  Report Type: Spontaneous
  Country: US (occurrence: US)
  Receive Date: 20210519
  Receipt Date: 20210519
  Transmission Date: 20210717
  Serious: No
  Sender: FDA-Public Use
  Company Number: US-CELLTRION INC.-2021US005415

PATIENT

DRUGS (4)
  1. TRUXIMA [Suspect]
     Active Substance: RITUXIMAB-ABBS
     Dosage: C2D2: RECEIVED 150 MG AND TO RETURN FOR 540 MG THE NEXT DAY (DOSE: 375 MG/M2 WITH TOTAL DOSE OF 690
  2. CHOP [Suspect]
     Active Substance: CYCLOPHOSPHAMIDE\DOXORUBICIN\PREDNISONE\VINCRISTINE
     Dosage: C2D1
  3. CHOP [Suspect]
     Active Substance: CYCLOPHOSPHAMIDE\DOXORUBICIN\PREDNISONE\VINCRISTINE
     Indication: FOLLICULAR LYMPHOMA
     Dosage: C1D1
  4. TRUXIMA [Suspect]
     Active Substance: RITUXIMAB-ABBS
     Indication: FOLLICULAR LYMPHOMA
     Dosage: C1D1: (DOSE: 375 MG/M2 WITH TOTAL DOSE OF 690 MG)

REACTIONS (1)
  - Infusion related reaction [Unknown]
